FAERS Safety Report 9565121 (Version 4)
Quarter: 2013Q4

REPORT INFORMATION
  Report Type: Spontaneous
  Country: BR (occurrence: BR)
  Receive Date: 20130930
  Receipt Date: 20131108
  Transmission Date: 20140711
  Serious: Yes (Life-Threatening, Hospitalization, Other)
  Sender: FDA-Public Use
  Company Number: BR-ROCHE-1279192

PATIENT
  Sex: Female
  Weight: 74 kg

DRUGS (9)
  1. RIVOTRIL [Suspect]
     Indication: INSOMNIA
     Dosage: IN THE EVENINGS
     Route: 060
  2. RIVOTRIL [Suspect]
     Indication: OFF LABEL USE
     Dosage: WITH WATER
     Route: 048
  3. ATENOLOL [Concomitant]
     Indication: BLOOD PRESSURE
     Route: 065
  4. OMEPRAZOLE [Concomitant]
     Indication: ABDOMINAL PAIN UPPER
     Route: 065
  5. RANITIDINE [Concomitant]
     Indication: ABDOMINAL PAIN UPPER
     Route: 065
  6. SYNTHROID [Concomitant]
     Indication: THYROID DISORDER
     Dosage: DURING FASTING PERIOD IN THE DAY
     Route: 065
  7. BETADINE [Concomitant]
     Indication: LABYRINTHITIS
     Dosage: IN THE EVENINGS
     Route: 065
  8. ROSUVASTATIN CALCIUM [Concomitant]
     Indication: BLOOD CHOLESTEROL ABNORMAL
     Dosage: IN THE EVENINGS
     Route: 065
  9. BACLOFEN [Concomitant]
     Indication: SPINAL PAIN
     Route: 065

REACTIONS (15)
  - Ischaemia [Not Recovered/Not Resolved]
  - Arteriosclerosis [Not Recovered/Not Resolved]
  - Intervertebral disc protrusion [Not Recovered/Not Resolved]
  - Cardiac disorder [Unknown]
  - Angina pectoris [Unknown]
  - Coma [Unknown]
  - Depression [Unknown]
  - Medication error [Unknown]
  - Product taste abnormal [Unknown]
  - Oral discomfort [Recovered/Resolved]
  - Glossodynia [Recovered/Resolved]
  - Skin exfoliation [Unknown]
  - Chest pain [Unknown]
  - Diabetes mellitus [Not Recovered/Not Resolved]
  - Amnesia [Recovered/Resolved]
